FAERS Safety Report 9207537 (Version 2)
Quarter: 2014Q2

REPORT INFORMATION
  Report Type: Spontaneous
  Country: US (occurrence: US)
  Receive Date: 20130403
  Receipt Date: 20140408
  Transmission Date: 20141212
  Serious: Yes (Hospitalization, Other)
  Sender: FDA-Public Use
  Company Number: US-BAYER-2013-039913

PATIENT
  Age: 23 Year
  Sex: Female

DRUGS (6)
  1. YASMIN [Suspect]
     Indication: ACNE
     Dosage: UNK
     Dates: start: 200412
  2. GLUCOTROL [Concomitant]
     Dosage: ONCE A DAY
  3. CATAPRES [Concomitant]
  4. VICODIN ES [Concomitant]
  5. LEVAQUIN [Concomitant]
  6. GLUCOPHAGE [Concomitant]

REACTIONS (8)
  - Cholelithiasis [None]
  - Cholecystitis chronic [None]
  - Injury [None]
  - Pain [None]
  - Pain [None]
  - Emotional distress [None]
  - Anxiety [None]
  - Fear [None]
